FAERS Safety Report 4709845-1 (Version None)
Quarter: 2005Q3

REPORT INFORMATION
  Report Type: 
  Country: None (occurrence: None)
  Receive Date: 20050708
  Receipt Date: 20041019
  Transmission Date: 20060218
  Serious: Yes (Hospitalization)
  Sender: FDA-Public Use
  Company Number: US-2004-BP-10219BP

PATIENT
  Age: 62 Year
  Sex: Male

DRUGS (6)
  1. MICARDIS [Suspect]
     Indication: HYPERTENSION
     Route: 048
     Dates: start: 19990501, end: 20030201
  2. MICARDIS [Suspect]
     Route: 048
     Dates: start: 20030201
  3. TENORMIN [Suspect]
     Indication: HYPERTENSION
     Route: 048
     Dates: start: 20030101
  4. PRAVACHOL [Suspect]
     Indication: BLOOD CHOLESTEROL INCREASED
     Route: 048
     Dates: start: 19990101
  5. PROPRANOLOL [Concomitant]
     Indication: HYPERTENSION
     Route: 048
     Dates: end: 19990101
  6. IMDUR [Concomitant]
     Indication: HYPERTENSION
     Route: 048
     Dates: start: 19990101

REACTIONS (11)
  - AGGRESSION [None]
  - AGITATION [None]
  - ANGIOPLASTY [None]
  - BRADYPHRENIA [None]
  - GAMBLING [None]
  - HYPOTENSION [None]
  - MEMORY IMPAIRMENT [None]
  - OBSESSIVE-COMPULSIVE DISORDER [None]
  - PHARMACEUTICAL PRODUCT COMPLAINT [None]
  - SEDATION [None]
  - SYNCOPE [None]
